FAERS Safety Report 25077834 (Version 1)
Quarter: 2025Q1

REPORT INFORMATION
  Report Type: Spontaneous
  Country: ES (occurrence: ES)
  Receive Date: 20250314
  Receipt Date: 20250314
  Transmission Date: 20250408
  Serious: Yes (Other)
  Sender: BOEHRINGER INGELHEIM
  Company Number: None

PATIENT
  Age: 63 Year
  Sex: Male

DRUGS (5)
  1. SYNJARDY [Suspect]
     Active Substance: EMPAGLIFLOZIN\METFORMIN HYDROCHLORIDE
     Indication: Diabetes mellitus
     Route: 048
     Dates: start: 20160601
  2. HUMALOG MIX75/25 KWIKPEN [Suspect]
     Active Substance: INSULIN LISPRO
     Indication: Diabetes mellitus
     Route: 058
  3. SULFAMETHOXAZOLE\TRIMETHOPRIM [Suspect]
     Active Substance: SULFAMETHOXAZOLE\TRIMETHOPRIM
     Indication: Infection
     Route: 048
     Dates: start: 20241216, end: 20250123
  4. LINEZOLID [Suspect]
     Active Substance: LINEZOLID
     Indication: Infection
     Route: 048
     Dates: start: 20250116, end: 20250228
  5. CEFEPIMA ACCORD 2 g POLVO PARA SOLUCION INYECTABLE Y PARA PERFUSION EF [Concomitant]
     Indication: Diabetic foot
     Route: 042
     Dates: start: 20241216, end: 20250127

REACTIONS (3)
  - Hypoglycaemia [Recovered/Resolved]
  - Hyperkalaemia [Recovered/Resolved]
  - Drug interaction [Unknown]

NARRATIVE: CASE EVENT DATE: 20250116
